FAERS Safety Report 18967811 (Version 1)
Quarter: 2021Q1

REPORT INFORMATION
  Report Type: Report from Study
  Country: DE (occurrence: DE)
  Receive Date: 20210304
  Receipt Date: 20210304
  Transmission Date: 20210420
  Serious: Yes (Hospitalization, Other)
  Sender: FDA-Public Use
  Company Number: DE-BRISTOL-MYERS SQUIBB COMPANY-BMS-2020-016117

PATIENT
  Age: 76 Year
  Sex: Male

DRUGS (18)
  1. CODEINUM [Concomitant]
     Indication: LUNG DISORDER
     Dosage: PRN
     Route: 065
  2. PREDNISOLON [PREDNISOLONE] [Concomitant]
     Active Substance: PREDNISOLONE
     Indication: NEOPLASM
     Dosage: 10 MILLIGRAM, PRN
     Route: 065
  3. SPIRIVA [Concomitant]
     Active Substance: TIOTROPIUM BROMIDE MONOHYDRATE
     Indication: LUNG DISORDER
     Dosage: 18?G AS NEEDED
     Route: 065
  4. NOVAMINSULFON [Concomitant]
     Active Substance: METAMIZOLE
     Indication: NEOPLASM
     Dosage: 500 MILLIGRAM, PRN
     Route: 065
  5. NIVOLUMAB [Suspect]
     Active Substance: NIVOLUMAB
     Indication: NON-SMALL CELL LUNG CANCER
     Dosage: 240 MILLIGRAM, Q2WK
     Route: 042
     Dates: start: 20170227
  6. EFEROX JOD [Concomitant]
     Indication: METABOLIC DISORDER
     Dosage: 1
     Route: 065
  7. MIRTAZAPIN [Concomitant]
     Active Substance: MIRTAZAPINE
     Indication: NEOPLASM
     Dosage: 15 MILLIGRAM, 1/4 TB AT NIGHT
     Route: 065
     Dates: end: 20171031
  8. TORASEMID [Concomitant]
     Active Substance: TORSEMIDE
     Indication: PROPHYLAXIS
     Dosage: 5 MILLIGRAM
     Route: 065
  9. GLIMEPIRID [Concomitant]
     Active Substance: GLIMEPIRIDE
     Indication: METABOLIC DISORDER
     Dosage: 1 MILLIGRAM
     Route: 065
  10. INSUMAN BASAL [Concomitant]
     Active Substance: INSULIN HUMAN
     Indication: METABOLIC DISORDER
     Dosage: 300 INTERNATIONAL UNIT
     Route: 065
     Dates: start: 20210113
  11. CLEXANE [Concomitant]
     Active Substance: ENOXAPARIN SODIUM
     Indication: CARDIOVASCULAR DISORDER
     Dosage: 0.4 MILLILITER
     Route: 065
     Dates: end: 20180420
  12. VITAMIN D3 [Concomitant]
     Active Substance: CHOLECALCIFEROL
     Indication: PROPHYLAXIS
     Dosage: 1
     Route: 065
  13. DICLOFENAC [Concomitant]
     Active Substance: DICLOFENAC
     Indication: NEOPLASM
     Dosage: 75 MILLIGRAM, PRN
     Route: 065
  14. METFORMIN [Concomitant]
     Active Substance: METFORMIN HYDROCHLORIDE
     Indication: METABOLIC DISORDER
     Dosage: 1000 MILLIGRAM
     Route: 065
     Dates: start: 20210114
  15. MCP [Concomitant]
     Active Substance: METOCLOPRAMIDE HYDROCHLORIDE
     Indication: NEOPLASM
     Dosage: 10 MILLIGRAM
     Route: 065
     Dates: end: 20180420
  16. CITALOPRAM [Concomitant]
     Active Substance: CITALOPRAM HYDROBROMIDE
     Indication: NEOPLASM
     Dosage: 20 MILLIGRAM
     Route: 065
     Dates: end: 20171031
  17. SIMVASTATIN. [Concomitant]
     Active Substance: SIMVASTATIN
     Indication: CARDIOVASCULAR DISORDER
     Dosage: 40 MILLIGRAM
     Route: 065
     Dates: end: 20171213
  18. FORMOTEROL [Concomitant]
     Active Substance: FORMOTEROL
     Indication: LUNG DISORDER
     Dosage: 2X12?G
     Route: 065

REACTIONS (5)
  - Nephritis bacterial [Unknown]
  - Diarrhoea [Recovering/Resolving]
  - Urinary tract infection [Recovered/Resolved]
  - Urosepsis [Recovered/Resolved]
  - Rash [Recovering/Resolving]

NARRATIVE: CASE EVENT DATE: 201909
